FAERS Safety Report 12162359 (Version 12)
Quarter: 2019Q4

REPORT INFORMATION
  Report Type: Spontaneous
  Country: US (occurrence: US)
  Receive Date: 20160309
  Receipt Date: 20191102
  Transmission Date: 20200122
  Serious: Yes (Life-Threatening, Congenital Anomaly, Other)
  Sender: FDA-Public Use
  Company Number: PHEH2016US005655

PATIENT
  Sex: Female

DRUGS (1)
  1. ZOFRAN [Suspect]
     Active Substance: ONDANSETRON HYDROCHLORIDE
     Indication: PRODUCT USED FOR UNKNOWN INDICATION
     Dosage: MOTHER^S DOSE: 4 MG, Q12H, AS NEEDED
     Route: 064

REACTIONS (38)
  - Foetal exposure during pregnancy [Unknown]
  - Major depression [Unknown]
  - Injury [Unknown]
  - Viral tonsillitis [Unknown]
  - Cardiac murmur [Unknown]
  - Scoliosis [Unknown]
  - Anxiety [Unknown]
  - Stress [Unknown]
  - Melanocytic naevus [Unknown]
  - Heart disease congenital [Unknown]
  - Pulmonary artery stenosis congenital [Unknown]
  - Gastrooesophageal reflux disease [Unknown]
  - Depressed mood [Unknown]
  - Social anxiety disorder [Unknown]
  - Irritable bowel syndrome [Unknown]
  - Headache [Unknown]
  - Congenital anomaly [Unknown]
  - Developmental delay [Unknown]
  - Muscle twitching [Unknown]
  - Suicide attempt [Unknown]
  - Pain [Unknown]
  - Suicidal ideation [Unknown]
  - Chest discomfort [Unknown]
  - Abdominal pain [Unknown]
  - Middle insomnia [Unknown]
  - Tremor [Unknown]
  - Otitis media [Unknown]
  - Ventricular septal defect [Unknown]
  - Left-to-right cardiac shunt [Unknown]
  - Anhedonia [Unknown]
  - Cough [Unknown]
  - Depression [Unknown]
  - Diarrhoea [Unknown]
  - Atrial septal defect [Unknown]
  - Sebaceous naevus [Unknown]
  - Tricuspid valve incompetence [Unknown]
  - Emotional distress [Unknown]
  - Lactose intolerance [Unknown]
